FAERS Safety Report 6880993-3 (Version None)
Quarter: 2010Q2

REPORT INFORMATION
  Report Type: 
  Country: None (occurrence: None)
  Receive Date: 20100630
  Receipt Date: 20100405
  Transmission Date: 20101027
  Serious: No
  Sender: FDA-Public Use
  Company Number: 2010IP000042

PATIENT
  Age: 63 Year
  Sex: Male

DRUGS (4)
  1. BEPREVE [Suspect]
     Indication: SEASONAL ALLERGY
     Dosage: 1 GTT;BID;OPH
     Dates: start: 20100331, end: 20100405
  2. LUMIGAN [Concomitant]
  3. ANTIBIOTICS [Concomitant]
  4. OMEPRAZOLE [Concomitant]

REACTIONS (2)
  - HERNIA PAIN [None]
  - OESOPHAGEAL PAIN [None]
